FAERS Safety Report 25926576 (Version 3)
Quarter: 2025Q4

REPORT INFORMATION
  Report Type: Spontaneous
  Country: GB (occurrence: GB)
  Receive Date: 20251015
  Receipt Date: 20251029
  Transmission Date: 20260118
  Serious: Yes (Other)
  Sender: BIOVITRUM
  Company Number: GB-BIOVITRUM-2025-GB-013136

PATIENT
  Sex: Female

DRUGS (6)
  1. GAMIFANT [Suspect]
     Active Substance: EMAPALUMAB-LZSG
     Indication: Haemophagocytic lymphohistiocytosis
     Dosage: TWICE WEEKLY
  2. GAMIFANT [Suspect]
     Active Substance: EMAPALUMAB-LZSG
     Dosage: TWICE WEEKLY
  3. GAMIFANT [Suspect]
     Active Substance: EMAPALUMAB-LZSG
     Dosage: TWICE WEEKLY
  4. GAMIFANT [Suspect]
     Active Substance: EMAPALUMAB-LZSG
     Dosage: TWICE WEEKLY
  5. ANAKINRA [Suspect]
     Active Substance: ANAKINRA
     Indication: Familial haemophagocytic lymphohistiocytosis
     Dates: start: 20250919
  6. ETOPOSIDE [Suspect]
     Active Substance: ETOPOSIDE
     Indication: Haemophagocytic lymphohistiocytosis
     Dosage: RECEIVED A TOTAL OF 5 DOSES

REACTIONS (4)
  - Off label use [Not Recovered/Not Resolved]
  - Bacteraemia [Recovering/Resolving]
  - Toxicity to various agents [Recovering/Resolving]
  - Skin disorder [Recovering/Resolving]

NARRATIVE: CASE EVENT DATE: 20250919
